FAERS Safety Report 5737282-X (Version None)
Quarter: 2008Q2

REPORT INFORMATION
  Report Type: 
  Country: None (occurrence: None)
  Receive Date: 20080512
  Receipt Date: 20080512
  Transmission Date: 20081010
  Serious: Yes (Other)
  Sender: FDA-Public Use
  Company Number: None

PATIENT
  Age: 60 Year
  Sex: Male
  Weight: 87.0906 kg

DRUGS (1)
  1. DIGITEK TABLETS 0.25 MYLAN PHARMACEUTICLAS [Suspect]
     Indication: HEART RATE IRREGULAR
     Dosage: 0.25 MG DAY PO
     Route: 048
     Dates: start: 20070501, end: 20080509

REACTIONS (3)
  - HEART RATE INCREASED [None]
  - PALPITATIONS [None]
  - PHARMACEUTICAL PRODUCT COMPLAINT [None]
